FAERS Safety Report 15745661 (Version 1)
Quarter: 2018Q4

REPORT INFORMATION
  Report Type: Spontaneous
  Country: IT (occurrence: IT)
  Receive Date: 20181220
  Receipt Date: 20181220
  Transmission Date: 20190205
  Serious: Yes (Hospitalization, Other)
  Sender: FDA-Public Use
  Company Number: PHHY2018IT186079

PATIENT
  Age: 73 Year
  Sex: Female

DRUGS (1)
  1. RAMIPRIL+HYDROCHLOROTHIAZIDE [Suspect]
     Active Substance: HYDROCHLOROTHIAZIDE\RAMIPRIL
     Indication: HYPERTENSION
     Route: 065

REACTIONS (6)
  - Vomiting [Unknown]
  - Dyspnoea [Unknown]
  - Acute pulmonary oedema [Unknown]
  - Acute respiratory failure [Unknown]
  - Diarrhoea [Unknown]
  - Pyrexia [Unknown]
